FAERS Safety Report 8796812 (Version 4)
Quarter: 2014Q2

REPORT INFORMATION
  Report Type: Spontaneous
  Country: US (occurrence: US)
  Receive Date: 20120917
  Receipt Date: 20140606
  Transmission Date: 20141212
  Serious: Yes (Other)
  Sender: FDA-Public Use
  Company Number: US-ASTRAZENECA-2012SE70936

PATIENT
  Age: 57 Year
  Sex: Female
  Weight: 68 kg

DRUGS (8)
  1. RHINOCORT AQUA [Suspect]
     Indication: MULTIPLE ALLERGIES
     Dosage: FOUR SPRAY TWICE DAILY IN EACH NOSTRIL
     Route: 045
  2. RHINOCORT AQUA [Suspect]
     Indication: MULTIPLE ALLERGIES
     Dosage: TWO SPRAY TWICE DAILY IN EACH NOSTRIL
     Route: 045
  3. RHINOCORT AQUA [Suspect]
     Indication: MULTIPLE ALLERGIES
     Dosage: 32 MCG, 4 SPRAYS BOTH BID
     Route: 045
     Dates: end: 20140520
  4. FLONASE [Suspect]
     Route: 065
  5. ALBUTEROL [Concomitant]
  6. ZYRTEC [Concomitant]
     Indication: HYPERSENSITIVITY
     Dates: start: 201205
  7. MUCINEX [Concomitant]
     Indication: PULMONARY CONGESTION
  8. OPTIMAR [Concomitant]
     Indication: EYE ALLERGY
     Route: 047

REACTIONS (15)
  - Haemoptysis [Unknown]
  - Feeling abnormal [Not Recovered/Not Resolved]
  - Malaise [Unknown]
  - Multiple allergies [Unknown]
  - Dyspnoea [Unknown]
  - Influenza [Unknown]
  - Nasal congestion [Unknown]
  - Fatigue [Unknown]
  - Dry throat [Unknown]
  - Head discomfort [Unknown]
  - Epistaxis [Unknown]
  - Intentional product misuse [Unknown]
  - Drug dose omission [Not Recovered/Not Resolved]
  - Off label use [Unknown]
  - Circumstance or information capable of leading to medication error [Unknown]
